FAERS Safety Report 12664773 (Version 2)
Quarter: 2016Q4

REPORT INFORMATION
  Report Type: Spontaneous
  Country: US (occurrence: US)
  Receive Date: 20160818
  Receipt Date: 20161118
  Transmission Date: 20170207
  Serious: Yes (Hospitalization)
  Sender: FDA-Public Use
  Company Number: US-PFIZER INC-2016383446

PATIENT
  Age: 65 Year
  Sex: Male
  Weight: 104 kg

DRUGS (5)
  1. PRILOSEC [Concomitant]
     Active Substance: OMEPRAZOLE MAGNESIUM
     Indication: ABDOMINAL DISCOMFORT
     Dosage: 20 MG, 2X/DAY
     Dates: start: 2000
  2. ARICEPT [Concomitant]
     Active Substance: DONEPEZIL HYDROCHLORIDE
     Indication: MEMORY IMPAIRMENT
     Dosage: 5 MG, UNK (AT BED TIME)
     Dates: start: 2012
  3. RAPAMUNE [Suspect]
     Active Substance: SIROLIMUS
     Indication: LIVER TRANSPLANT
     Dosage: 1 MG, DAILY
     Dates: start: 1999
  4. ALLOPURINOL. [Concomitant]
     Active Substance: ALLOPURINOL
     Indication: GOUT
     Dosage: 100 MG, 1X/DAY
     Dates: start: 2013
  5. CARVEDILOL. [Concomitant]
     Active Substance: CARVEDILOL
     Dosage: 3.125 MG, UNK
     Dates: start: 2016

REACTIONS (5)
  - Pyrexia [Not Recovered/Not Resolved]
  - Thrombosis [Recovered/Resolved]
  - Product use issue [Unknown]
  - Lymphoedema [Not Recovered/Not Resolved]
  - Malaise [Recovered/Resolved]

NARRATIVE: CASE EVENT DATE: 1999
